FAERS Safety Report 6773989-3 (Version None)
Quarter: 2010Q2

REPORT INFORMATION
  Report Type: 
  Country: None (occurrence: None)
  Receive Date: 20100615
  Receipt Date: 20100615
  Transmission Date: 20101027
  Serious: Yes (Hospitalization, Disabling)
  Sender: FDA-Public Use
  Company Number: None

PATIENT
  Age: 65 Year
  Sex: Female
  Weight: 69.8539 kg

DRUGS (2)
  1. FOSAMAX [Suspect]
     Indication: OSTEOPENIA
     Dosage: ONE WEEKLY PO
     Route: 048
     Dates: start: 19890124, end: 20060121
  2. BONIVA [Suspect]
     Indication: OSTEOPENIA
     Dosage: 3 MG EVERY 3 MONTHS IV
     Route: 042
     Dates: start: 20060123, end: 20100121

REACTIONS (3)
  - BURSITIS [None]
  - FEMUR FRACTURE [None]
  - PATHOLOGICAL FRACTURE [None]
